FAERS Safety Report 8210461-8 (Version None)
Quarter: 2012Q1

REPORT INFORMATION
  Report Type: 
  Country: None (occurrence: None)
  Receive Date: 20120314
  Receipt Date: 20110315
  Transmission Date: 20120608
  Serious: No
  Sender: FDA-Public Use
  Company Number: US-ASTRAZENECA-2011SE14832

PATIENT

DRUGS (13)
  1. TOPROL-XL [Suspect]
     Route: 048
  2. HYDRODIURIL [Concomitant]
  3. ZOCOR [Concomitant]
  4. FLONASE [Concomitant]
  5. CATAPRES [Concomitant]
  6. FISH OIL [Concomitant]
  7. NEXIUM [Suspect]
     Route: 048
  8. LEVAQUIN [Concomitant]
  9. COZAAR [Concomitant]
  10. AMARYL [Concomitant]
  11. CRESTOR [Suspect]
     Route: 048
  12. MULTIPLE VITAMINS [Concomitant]
  13. ARISTOCORT [Concomitant]

REACTIONS (1)
  - MYALGIA [None]
